FAERS Safety Report 18767045 (Version 2)
Quarter: 2023Q4

REPORT INFORMATION
  Report Type: Other
  Country: ES (occurrence: None)
  Receive Date: 20210121
  Receipt Date: 20231127
  Transmission Date: 20240110
  Serious: Yes (Other)
  Sender: FDA-Public Use
  Company Number: ES-SAPTALIS PHARMACEUTICALS,LLC-000013

PATIENT
  Age: 58 Year
  Sex: Male

DRUGS (1)
  1. TRIAMCINOLONE ACETONIDE [Suspect]
     Active Substance: TRIAMCINOLONE ACETONIDE
     Indication: Chalazion
     Dosage: 0.5 ML OF TRIAMCINOLONE ACETONIDE  (DEPOT 40 MG / ML)

REACTIONS (1)
  - Chorioretinopathy [Recovered/Resolved]
